FAERS Safety Report 20873757 (Version 1)
Quarter: 2022Q2

REPORT INFORMATION
  Report Type: Other
  Country: None (occurrence: IT)
  Receive Date: 20220525
  Receipt Date: 20220525
  Transmission Date: 20220721
  Serious: Yes (Hospitalization, Other)
  Sender: FDA-Public Use
  Company Number: IT-Breckenridge Pharmaceutical, Inc.-2129165

PATIENT
  Age: 16 Year
  Sex: Female

DRUGS (1)
  1. LANSOPRAZOLE [Suspect]
     Active Substance: LANSOPRAZOLE
     Indication: Gastritis erosive
     Route: 048

REACTIONS (1)
  - Bipolar disorder [Recovered/Resolved]
